FAERS Safety Report 6520588-4 (Version None)
Quarter: 2009Q4

REPORT INFORMATION
  Report Type: 
  Country: None (occurrence: None)
  Receive Date: 20091229
  Receipt Date: 20091216
  Transmission Date: 20100525
  Serious: Yes (Hospitalization, Disabling)
  Sender: FDA-Public Use
  Company Number: FR-BRISTOL-MYERS SQUIBB COMPANY-14900450

PATIENT
  Age: 58 Year
  Sex: Male

DRUGS (6)
  1. SUSTIVA [Suspect]
     Indication: HIV INFECTION
     Dosage: JUN-2008
     Route: 048
     Dates: start: 20040101
  2. SUSTIVA [Suspect]
     Indication: METABOLIC DISORDER
     Dosage: JUN-2008
     Route: 048
     Dates: start: 20040101
  3. GLUCOPHAGE [Suspect]
     Indication: TYPE 2 DIABETES MELLITUS
     Route: 048
     Dates: start: 20080917, end: 20080925
  4. CRESTOR [Suspect]
     Indication: HYPERTRIGLYCERIDAEMIA
     Dosage: TABLET
     Route: 048
     Dates: start: 20080626, end: 20080925
  5. CRESTOR [Suspect]
     Indication: HYPERCHOLESTEROLAEMIA
     Dosage: TABLET
     Route: 048
     Dates: start: 20080626, end: 20080925
  6. ISENTRESS [Suspect]
     Indication: METABOLIC DISORDER
     Dosage: TABLET
     Route: 048
     Dates: start: 20080601, end: 20080925

REACTIONS (1)
  - OPTIC NEURITIS [None]
